FAERS Safety Report 10314918 (Version 2)
Quarter: 2014Q3

REPORT INFORMATION
  Report Type: Spontaneous
  Country: US (occurrence: US)
  Receive Date: 20140718
  Receipt Date: 20140819
  Transmission Date: 20150326
  Serious: No
  Sender: FDA-Public Use
  Company Number: US-PFIZER INC-2014198401

PATIENT
  Age: 6 Year
  Sex: Female

DRUGS (1)
  1. GENOTROPIN MQ [Suspect]
     Active Substance: SOMATROPIN
     Indication: TURNER^S SYNDROME
     Dosage: 1.4 MG, UNK
     Route: 058
     Dates: start: 201007, end: 20140318

REACTIONS (1)
  - Precocious puberty [Not Recovered/Not Resolved]

NARRATIVE: CASE EVENT DATE: 201403
